FAERS Safety Report 18545346 (Version 3)
Quarter: 2021Q2

REPORT INFORMATION
  Report Type: Report from Study
  Country: MA (occurrence: MA)
  Receive Date: 20201125
  Receipt Date: 20210512
  Transmission Date: 20210717
  Serious: Yes (Disabling, Other)
  Sender: FDA-Public Use
  Company Number: NVSC2020MA309535

PATIENT
  Age: 48 Year
  Sex: Female

DRUGS (2)
  1. KISQALI [Suspect]
     Active Substance: RIBOCICLIB
     Indication: BREAST CANCER
     Dosage: 200 MG
     Route: 048
     Dates: start: 20200701
  2. ZITHROMAX [Suspect]
     Active Substance: AZITHROMYCIN DIHYDRATE
     Indication: PRODUCT USED FOR UNKNOWN INDICATION
     Dosage: UNK
     Route: 065

REACTIONS (13)
  - Asthenia [Unknown]
  - Pyrexia [Recovered/Resolved]
  - Transaminases increased [Unknown]
  - Coagulopathy [Recovered/Resolved]
  - Hepatic pain [Unknown]
  - Gastrointestinal inflammation [Unknown]
  - Abdominal pain [Unknown]
  - Thrombosis [Recovered/Resolved]
  - Dyskinesia [Unknown]
  - Fatigue [Unknown]
  - COVID-19 [Recovered/Resolved]
  - Feeling abnormal [Unknown]
  - Illness [Unknown]

NARRATIVE: CASE EVENT DATE: 20201113
